FAERS Safety Report 5895870-4 (Version None)
Quarter: 2008Q3

REPORT INFORMATION
  Report Type: 
  Country: None (occurrence: None)
  Receive Date: 20080924
  Receipt Date: 20080916
  Transmission Date: 20090109
  Serious: Yes (Other)
  Sender: FDA-Public Use
  Company Number: AU-JNJCH-2008024259

PATIENT
  Sex: Female

DRUGS (1)
  1. COOL MINT LISTERINE POCKETPAKS [Suspect]
     Indication: DENTAL DISORDER PROPHYLAXIS
     Dosage: TEXT:1 STRIP
     Route: 048
     Dates: start: 20080915, end: 20080915

REACTIONS (2)
  - HYPERSENSITIVITY [None]
  - PANIC REACTION [None]
